FAERS Safety Report 8011280-8 (Version None)
Quarter: 2011Q4

REPORT INFORMATION
  Report Type: 
  Country: None (occurrence: None)
  Receive Date: 20111227
  Receipt Date: 20111227
  Transmission Date: 20120403
  Serious: Yes (Other)
  Sender: FDA-Public Use
  Company Number: None

PATIENT
  Age: 34 Year
  Sex: Female
  Weight: 99.79 kg

DRUGS (1)
  1. BISACODYL [Suspect]
     Indication: CONSTIPATION
     Dosage: 1 TO 3 TABLETS
     Route: 048
     Dates: start: 20111225, end: 20111225

REACTIONS (6)
  - ABDOMINAL PAIN UPPER [None]
  - THINKING ABNORMAL [None]
  - HEADACHE [None]
  - VISUAL IMPAIRMENT [None]
  - CHILLS [None]
  - NAUSEA [None]
